FAERS Safety Report 20335374 (Version 1)
Quarter: 2022Q1

REPORT INFORMATION
  Report Type: Spontaneous
  Country: US (occurrence: None)
  Receive Date: 20220113
  Receipt Date: 20220113
  Transmission Date: 20220424
  Serious: Yes (Other)
  Sender: FDA-Public Use
  Company Number: None

PATIENT
  Age: 57 Year
  Sex: Female
  Weight: 61.65 kg

DRUGS (1)
  1. RENFLEXIS [Suspect]
     Active Substance: INFLIXIMAB-ABDA
     Indication: Rheumatoid arthritis
     Dosage: FREQUENCY : ONCE;?
     Route: 042
     Dates: start: 20190114

REACTIONS (4)
  - Pruritus [None]
  - Infusion related reaction [None]
  - Oral discomfort [None]
  - Flatulence [None]

NARRATIVE: CASE EVENT DATE: 20220106
